FAERS Safety Report 24941431 (Version 1)
Quarter: 2025Q1

REPORT INFORMATION
  Report Type: Spontaneous
  Country: US (occurrence: US)
  Receive Date: 20250207
  Receipt Date: 20250207
  Transmission Date: 20250408
  Serious: No
  Sender: PHARMACOSMOS A/S
  Company Number: US-NEBO-685510

PATIENT

DRUGS (1)
  1. COSELA [Suspect]
     Active Substance: TRILACICLIB DIHYDROCHLORIDE
     Indication: Product used for unknown indication

REACTIONS (1)
  - Burning sensation [Unknown]
